FAERS Safety Report 15305875 (Version 2)
Quarter: 2018Q3

REPORT INFORMATION
  Report Type: Spontaneous
  Country: US (occurrence: US)
  Receive Date: 20180822
  Receipt Date: 20180903
  Transmission Date: 20181010
  Serious: Yes (Congenital Anomaly, Other)
  Sender: FDA-Public Use
  Company Number: US-TEVA-2018-US-946436

PATIENT
  Age: 6 Year
  Sex: Female

DRUGS (3)
  1. CISPLATIN. [Concomitant]
     Active Substance: CISPLATIN
     Indication: MEDULLOBLASTOMA
     Route: 065
  2. VINCRISTINE [Suspect]
     Active Substance: VINCRISTINE
     Indication: MEDULLOBLASTOMA
     Route: 065
  3. CYCLOPHOSPHAMIDE. [Concomitant]
     Active Substance: CYCLOPHOSPHAMIDE
     Indication: MEDULLOBLASTOMA
     Route: 065

REACTIONS (3)
  - Hereditary motor and sensory neuropathy [Recovering/Resolving]
  - Neurotoxicity [Recovering/Resolving]
  - Unmasking of previously unidentified disease [Recovering/Resolving]
